FAERS Safety Report 25222834 (Version 3)
Quarter: 2025Q4

REPORT INFORMATION
  Report Type: Spontaneous
  Country: US (occurrence: US)
  Receive Date: 20250422
  Receipt Date: 20251211
  Transmission Date: 20260118
  Serious: Yes (Other)
  Sender: SANOFI AVENTIS
  Company Number: US-SANOFI-02492550

PATIENT
  Age: 71 Year
  Sex: Female

DRUGS (2)
  1. INSULIN GLARGINE [Suspect]
     Active Substance: INSULIN GLARGINE
     Indication: Type 2 diabetes mellitus
     Dosage: 20 IU, BID
     Route: 065
  2. INSULIN GLARGINE [Suspect]
     Active Substance: INSULIN GLARGINE
     Dosage: 20 IU, HS
     Route: 065

REACTIONS (8)
  - Cerebral thrombosis [Unknown]
  - Cerebrovascular accident [Unknown]
  - Diabetes mellitus inadequate control [Unknown]
  - Injection site bruising [Unknown]
  - Device mechanical issue [Unknown]
  - Memory impairment [Unknown]
  - Glycosylated haemoglobin increased [Recovering/Resolving]
  - Inappropriate schedule of product administration [Unknown]
